FAERS Safety Report 6611874-8 (Version None)
Quarter: 2010Q1

REPORT INFORMATION
  Report Type: 
  Country: None (occurrence: None)
  Receive Date: 20100225
  Receipt Date: 20100215
  Transmission Date: 20100710
  Serious: Yes (Hospitalization, Other)
  Sender: FDA-Public Use
  Company Number: A-NJ2009-27716

PATIENT
  Age: 48 Year
  Sex: Female
  Weight: 82.9 kg

DRUGS (17)
  1. TRACLEER [Suspect]
     Indication: PULMONARY ARTERIAL HYPERTENSION
     Dosage: 125 MG, BID, ORAL
     Route: 048
     Dates: start: 20070901
  2. REMODULIN [Concomitant]
  3. INSULIN [Concomitant]
  4. ASPIRIN [Concomitant]
  5. PLAVIX [Concomitant]
  6. DOMPERIDONE [Suspect]
  7. SYNTHROID [Concomitant]
  8. LEXAPRO [Concomitant]
  9. ZOCOR [Concomitant]
  10. LOVAZA [Concomitant]
  11. TYLENOL (PARACETAMOL) [Concomitant]
  12. ZOFRAN [Concomitant]
  13. RENAGEL [Concomitant]
  14. TOPAMAX [Concomitant]
  15. PROTONIX [Concomitant]
  16. NEURONTIN [Concomitant]
  17. ELAVIL [Concomitant]

REACTIONS (17)
  - ATRIAL FIBRILLATION [None]
  - BLOOD GLUCOSE DECREASED [None]
  - BONE LESION [None]
  - DEVICE RELATED SEPSIS [None]
  - DIARRHOEA [None]
  - GENERALISED OEDEMA [None]
  - H1N1 INFLUENZA [None]
  - HAEMODIALYSIS [None]
  - HEADACHE [None]
  - HYPOTENSION [None]
  - INTERVERTEBRAL DISC PROTRUSION [None]
  - LYMPHADENOPATHY MEDIASTINAL [None]
  - PANCYTOPENIA [None]
  - PNEUMONITIS [None]
  - PORTAL HYPERTENSION [None]
  - SARCOIDOSIS [None]
  - SPLENOMEGALY [None]
